FAERS Safety Report 20837396 (Version 2)
Quarter: 2022Q2

REPORT INFORMATION
  Report Type: Spontaneous
  Country: RO (occurrence: None)
  Receive Date: 20220517
  Receipt Date: 20220617
  Transmission Date: 20220720
  Serious: Yes (Life-Threatening)
  Sender: FDA-Public Use
  Company Number: 2022A185044

PATIENT
  Sex: Female

DRUGS (1)
  1. FASENRA [Suspect]
     Active Substance: BENRALIZUMAB
     Indication: Asthma
     Dosage: 30 MG; ADMINISTERED 4 DOSES (THE FIRST 3 EVERY 4 WEEKS AND THE FOURTH DOSE AT 8 WEEKS)
     Route: 058

REACTIONS (1)
  - Hypertension [Unknown]
